FAERS Safety Report 10084055 (Version 1)
Quarter: 2014Q2

REPORT INFORMATION
  Report Type: Spontaneous
  Country: US (occurrence: US)
  Receive Date: 20140417
  Receipt Date: 20140417
  Transmission Date: 20141212
  Serious: Yes (Other)
  Sender: FDA-Public Use
  Company Number: US-ABBVIE-14P-163-1225768-00

PATIENT
  Age: 31 Year
  Sex: Male

DRUGS (2)
  1. DEPAKOTE [Suspect]
     Indication: CONVULSION
  2. LAMICTAL [Suspect]
     Indication: CONVULSION
     Route: 048

REACTIONS (3)
  - Facial bones fracture [Recovering/Resolving]
  - Convulsion [Recovering/Resolving]
  - Underdose [Unknown]
